FAERS Safety Report 14656849 (Version 1)
Quarter: 2018Q1

REPORT INFORMATION
  Report Type: Spontaneous
  Country: US (occurrence: US)
  Receive Date: 20180319
  Receipt Date: 20180319
  Transmission Date: 20180509
  Serious: No
  Sender: FDA-Public Use
  Company Number: US-SA-2017SA096140

PATIENT
  Age: 25 Year
  Sex: Male
  Weight: 92.99 kg

DRUGS (1)
  1. NASACORT [Suspect]
     Active Substance: TRIAMCINOLONE ACETONIDE
     Indication: HYPERSENSITIVITY
     Dosage: TWICE ON YESTERDAY AND ONE TIME TODAY
     Route: 065

REACTIONS (1)
  - Drug ineffective [Unknown]
